FAERS Safety Report 24978518 (Version 2)
Quarter: 2025Q1

REPORT INFORMATION
  Report Type: Report from Study
  Country: US (occurrence: US)
  Receive Date: 20250218
  Receipt Date: 20250310
  Transmission Date: 20250409
  Serious: Yes (Other)
  Sender: BIOGEN
  Company Number: US-BIOGEN-2025BI01300785

PATIENT
  Age: 64 Year
  Sex: Female

DRUGS (1)
  1. TYSABRI [Suspect]
     Active Substance: NATALIZUMAB
     Indication: Multiple sclerosis
     Route: 050
     Dates: start: 20160205

REACTIONS (4)
  - Retinal detachment [Unknown]
  - Visual impairment [Unknown]
  - Ophthalmic migraine [Unknown]
  - Headache [Unknown]

NARRATIVE: CASE EVENT DATE: 20250124
